FAERS Safety Report 10175801 (Version 1)
Quarter: 2014Q2

REPORT INFORMATION
  Report Type: Spontaneous
  Country: US (occurrence: US)
  Receive Date: 20140516
  Receipt Date: 20140516
  Transmission Date: 20141212
  Serious: Yes (Other)
  Sender: FDA-Public Use
  Company Number: US-AMGEN INC.-USASP2014035608

PATIENT
  Age: 88 Year
  Sex: Male

DRUGS (1)
  1. ENBREL [Suspect]
     Indication: RHEUMATOID ARTHRITIS
     Dosage: 50 MG, QWK
     Route: 065
     Dates: start: 20050518

REACTIONS (3)
  - Deafness [Not Recovered/Not Resolved]
  - Hypoacusis [Not Recovered/Not Resolved]
  - Injection site pain [Recovered/Resolved]
